FAERS Safety Report 8799385 (Version 1)
Quarter: 2012Q4

REPORT INFORMATION
  Report Type: 
  Country: IT (occurrence: IT)
  Receive Date: 20120919
  Receipt Date: 20120919
  Transmission Date: 20130627
  Serious: Yes (Other)
  Sender: FDA-Public Use
  Company Number: IT-PFIZER INC-2012229099

PATIENT

DRUGS (4)
  1. SUTENT [Suspect]
     Indication: RENAL CELL CARCINOMA
     Dosage: 37.5 mg, 1x/day
     Route: 048
     Dates: start: 20090401, end: 20101118
  2. PROSTATIL [Concomitant]
     Dosage: 2 mg, 1x/day
     Route: 048
     Dates: start: 20060702, end: 20101118
  3. VYTORIN [Concomitant]
     Dosage: 10 mg, 1x/day
     Route: 048
     Dates: start: 20081002, end: 20101118
  4. ANTRA [Concomitant]
     Dosage: 10 mg, 1x/day
     Dates: start: 20081010

REACTIONS (1)
  - Ventricular hypokinesia [Recovered/Resolved]
